FAERS Safety Report 8053164-5 (Version None)
Quarter: 2012Q1

REPORT INFORMATION
  Report Type: 
  Country: None (occurrence: None)
  Receive Date: 20120118
  Receipt Date: 20120116
  Transmission Date: 20120608
  Serious: No
  Sender: FDA-Public Use
  Company Number: US-JNJFOC-20120106275

PATIENT
  Age: 63 Year
  Sex: Male

DRUGS (6)
  1. ZYPREXA [Concomitant]
     Route: 065
  2. ATIVAN [Concomitant]
     Route: 065
  3. GLUCOPHAGE [Concomitant]
     Route: 065
  4. INVEGA SUSTENNA [Suspect]
     Indication: PRODUCT USED FOR UNKNOWN INDICATION
     Route: 030
  5. BLOOD PRESSURE MEDICATION NOS [Concomitant]
     Route: 065
  6. SEROQUEL [Concomitant]
     Route: 065

REACTIONS (2)
  - WHITE BLOOD CELL COUNT DECREASED [None]
  - GLYCOSYLATED HAEMOGLOBIN INCREASED [None]
